FAERS Safety Report 14345747 (Version 1)
Quarter: 2018Q1

REPORT INFORMATION
  Report Type: Spontaneous
  Country: DE (occurrence: DE)
  Receive Date: 20180103
  Receipt Date: 20180103
  Transmission Date: 20180509
  Serious: Yes (Hospitalization)
  Sender: FDA-Public Use
  Company Number: DE-CELGENEUS-DEU-20171207018

PATIENT
  Age: 56 Year
  Sex: Male

DRUGS (1)
  1. THALOMID [Suspect]
     Active Substance: THALIDOMIDE
     Indication: GLIOBLASTOMA
     Dosage: 400MG PER DAY
     Route: 048

REACTIONS (4)
  - Myalgia [Unknown]
  - Epilepsy [Unknown]
  - Gait inability [Unknown]
  - Hypoaesthesia [Unknown]
